FAERS Safety Report 21353759 (Version 1)
Quarter: 2022Q3

REPORT INFORMATION
  Report Type: Spontaneous
  Country: IT (occurrence: IT)
  Receive Date: 20220920
  Receipt Date: 20220920
  Transmission Date: 20221026
  Serious: Yes (Other)
  Sender: FDA-Public Use
  Company Number: IT-ASTELLAS-2022US033114

PATIENT
  Age: 54 Year
  Sex: Male

DRUGS (2)
  1. XOSPATA [Suspect]
     Active Substance: GILTERITINIB
     Indication: Product used for unknown indication
     Dosage: UNK UNK, UNKNOWN FREQ.
     Route: 065
  2. XOSPATA [Suspect]
     Active Substance: GILTERITINIB
     Dosage: UNK UNK, UNKNOWN FREQ. (RESUMED)
     Route: 065

REACTIONS (3)
  - Graft versus host disease in lung [Not Recovered/Not Resolved]
  - Graft versus host disease in eye [Not Recovered/Not Resolved]
  - SARS-CoV-2 test positive [Unknown]
